FAERS Safety Report 7211031-0 (Version None)
Quarter: 2011Q1

REPORT INFORMATION
  Report Type: 
  Country: None (occurrence: None)
  Receive Date: 20110105
  Receipt Date: 20101231
  Transmission Date: 20110831
  Serious: Yes (Death)
  Sender: FDA-Public Use
  Company Number: US-ASTRAZENECA-2011SE00348

PATIENT
  Age: 90 Year
  Sex: Male

DRUGS (4)
  1. CLOPIDOGREL [Suspect]
     Route: 048
  2. LISINOPRIL AND HYDROCHLOROTHIAZIDE [Suspect]
     Route: 048
  3. DIGOXIN [Suspect]
     Route: 048
  4. METOPROLOL TARTRATE [Suspect]
     Route: 048

REACTIONS (2)
  - MEDICATION ERROR [None]
  - TOXICITY TO VARIOUS AGENTS [None]
